FAERS Safety Report 25627263 (Version 2)
Quarter: 2025Q3

REPORT INFORMATION
  Report Type: Spontaneous
  Country: US (occurrence: US)
  Receive Date: 20250731
  Receipt Date: 20250909
  Transmission Date: 20251021
  Serious: Yes (Hospitalization)
  Sender: BLUEPRINT MEDICINES
  Company Number: US-Blueprint Medicines Corporation-2025-AER-01665

PATIENT
  Age: 45 Year
  Sex: Female

DRUGS (1)
  1. AYVAKIT [Suspect]
     Active Substance: AVAPRITINIB
     Indication: Malignant mast cell neoplasm
     Route: 065
     Dates: start: 20210805

REACTIONS (12)
  - Abdominal pain [Unknown]
  - Rash [Unknown]
  - Brain fog [Unknown]
  - Mastocytosis [Unknown]
  - Fluid retention [Unknown]
  - Thirst [Unknown]
  - Pollakiuria [Unknown]
  - Tryptase increased [Unknown]
  - C-reactive protein abnormal [Unknown]
  - Hypotension [Unknown]
  - Mobility decreased [Unknown]
  - Condition aggravated [Unknown]

NARRATIVE: CASE EVENT DATE: 20250701
